FAERS Safety Report 16270734 (Version 3)
Quarter: 2019Q2

REPORT INFORMATION
  Report Type: Spontaneous
  Country: BR (occurrence: BR)
  Receive Date: 20190503
  Receipt Date: 20190612
  Transmission Date: 20190711
  Serious: Yes (Other)
  Sender: FDA-Public Use
  Company Number: BR-SA-2019SA104886

PATIENT
  Age: 46 Year
  Sex: Female
  Weight: 64 kg

DRUGS (11)
  1. FLUOXETINE [Concomitant]
     Active Substance: FLUOXETINE HYDROCHLORIDE
     Indication: DEPRESSION
     Dosage: IN THE MORNING
     Route: 065
  2. SIMVASTATIN. [Concomitant]
     Active Substance: SIMVASTATIN
     Indication: PROMOTION OF PERIPHERAL CIRCULATION
     Dosage: UNK UNK, HS,AT NIGHT
     Route: 065
  3. CAPTOPRIL BP [Concomitant]
     Indication: BLOOD PRESSURE MEASUREMENT
     Dosage: UNK UNK, BID,IN THE MORNING AND NIGHT
     Route: 065
  4. GABAPENTIN. [Concomitant]
     Active Substance: GABAPENTIN
     Indication: PAIN
     Dosage: UNK UNK, HS,AT NIGHT
     Route: 065
  5. DIPROSPAN [Suspect]
     Active Substance: BETAMETHASONE DIPROPIONATE\BETAMETHASONE SODIUM PHOSPHATE
     Indication: PAIN
     Dosage: 1 AMPOULE
     Route: 065
     Dates: start: 20190418
  6. APIDRA [Suspect]
     Active Substance: INSULIN GLULISINE
     Dosage: MORE THAN 2 TIMES A DAY
     Route: 065
  7. LOSARTAN. [Concomitant]
     Active Substance: LOSARTAN
     Indication: BLOOD PRESSURE MEASUREMENT
     Dosage: UNK UNK, BID,IN THE MORNING AND NIGHT
     Route: 065
  8. ACETYLSALICYLIC ACID [Concomitant]
     Active Substance: ASPIRIN
     Indication: RENAL DISORDER PROPHYLAXIS
     Dosage: UNK UNK, QD,AFTER LUNCH
     Route: 065
  9. LANTUS [Suspect]
     Active Substance: INSULIN GLARGINE
     Indication: DIABETES MELLITUS
     Dosage: 24 IU, QD
     Route: 058
  10. LOSARTAN. [Concomitant]
     Active Substance: LOSARTAN
     Indication: RENAL DISORDER PROPHYLAXIS
  11. APIDRA [Suspect]
     Active Substance: INSULIN GLULISINE
     Indication: DIABETES MELLITUS
     Dosage: UNK, TID
     Route: 058
     Dates: start: 2016

REACTIONS (7)
  - Drug ineffective [Unknown]
  - Unevaluable event [Unknown]
  - Hyperglycaemia [Recovered/Resolved]
  - Product quality issue [Unknown]
  - Blood glucose increased [Not Recovered/Not Resolved]
  - Multiple use of single-use product [Unknown]
  - Carpal tunnel decompression [Unknown]

NARRATIVE: CASE EVENT DATE: 20190411
